FAERS Safety Report 9711085 (Version 2)
Quarter: 2013Q4

REPORT INFORMATION
  Report Type: Spontaneous
  Country: US (occurrence: US)
  Receive Date: 20131126
  Receipt Date: 20131126
  Transmission Date: 20140711
  Serious: No
  Sender: FDA-Public Use
  Company Number: US-BRISTOL-MYERS SQUIBB COMPANY-18703470

PATIENT
  Sex: Female

DRUGS (1)
  1. BYDUREON [Suspect]
     Route: 058
     Dates: start: 201301

REACTIONS (5)
  - Injection site nodule [Not Recovered/Not Resolved]
  - Abdominal distension [Unknown]
  - Weight fluctuation [Unknown]
  - Decreased appetite [Unknown]
  - Flatulence [Unknown]
